FAERS Safety Report 8850076 (Version 1)
Quarter: 2012Q4

REPORT INFORMATION
  Report Type: Report from Study
  Country: CA (occurrence: CA)
  Receive Date: 20121019
  Receipt Date: 20121019
  Transmission Date: 20130627
  Serious: Yes (Other)
  Sender: FDA-Public Use
  Company Number: CA-JNJFOC-20121006667

PATIENT
  Age: 38 Year
  Sex: Male
  Weight: 104.5 kg

DRUGS (7)
  1. REMICADE [Suspect]
     Indication: CROHN^S DISEASE
     Route: 042
     Dates: start: 20090409
  2. BENADRYL [Concomitant]
     Indication: PREMEDICATION
     Route: 065
  3. TYLENOL [Concomitant]
     Indication: PREMEDICATION
     Route: 065
  4. REACTINE [Concomitant]
     Indication: PREMEDICATION
     Route: 065
  5. HYDROCORTISONE [Concomitant]
     Indication: PREMEDICATION
     Route: 065
  6. METHOTREXATE [Concomitant]
     Indication: PREMEDICATION
     Route: 065
  7. CYMBALTA [Concomitant]
     Indication: PREMEDICATION
     Route: 065

REACTIONS (2)
  - Fistula [Recovering/Resolving]
  - Pyrexia [Recovering/Resolving]
